FAERS Safety Report 21513143 (Version 2)
Quarter: 2022Q4

REPORT INFORMATION
  Report Type: Report from Study
  Country: AR (occurrence: AR)
  Receive Date: 20221027
  Receipt Date: 20221115
  Transmission Date: 20230112
  Serious: Yes (Hospitalization)
  Sender: FDA-Public Use
  Company Number: AR-PINTPH-30

PATIENT

DRUGS (11)
  1. NERLYNX [Suspect]
     Active Substance: NERATINIB
     Indication: HER2 positive breast cancer
     Dosage: THE PATIENT STARTED TREATMENT WITH NERATINIB 120 MG ON 27JUL. ON 3AUG2022, IT WAS INCREASED TO 16...
     Route: 065
     Dates: start: 20220727
  2. NERLYNX [Suspect]
     Active Substance: NERATINIB
     Dosage: THE PATIENT STARTED TREATMENT WITH NERATINIB 120 MG ON 27JUL. ON 3AUG2022, IT WAS INCREASED TO 16...
     Route: 048
     Dates: start: 20220803
  3. NERLYNX [Suspect]
     Active Substance: NERATINIB
     Dosage: THE PATIENT STARTED TREATMENT WITH NERATINIB 120 MG ON 27JUL. ON 3AUG2022, IT WAS INCREASED TO 16...
     Route: 048
  4. CAPECITABINE [Concomitant]
     Active Substance: CAPECITABINE
     Indication: Product used for unknown indication
     Dosage: THERAPY DATES: PATIENT TOOK A BREAK FROM CAPECITABINE ON AN UNKNOWN DATE.
     Route: 048
     Dates: start: 2019
  5. ANASTROZOLE [Concomitant]
     Active Substance: ANASTROZOLE
     Indication: Product used for unknown indication
     Dosage: DOSE INTERVAL AND THERAPY DATES: UNK
     Route: 065
  6. LOPERAMIDE [Concomitant]
     Active Substance: LOPERAMIDE
     Indication: Product used for unknown indication
     Dosage: DOSE: 4MG EVERY 8 HRSTHERAPY DATES: UNK
  7. LETROZOLE [Concomitant]
     Active Substance: LETROZOLE
     Indication: Product used for unknown indication
     Dosage: DOSE AND THERAPY DATES: UNK ()
  8. LAPATINIB [Concomitant]
     Active Substance: LAPATINIB
     Indication: Product used for unknown indication
     Dosage: DOSE: UNK ()
     Dates: start: 2019
  9. Trastuzumab-pertuzumab [Concomitant]
     Indication: Product used for unknown indication
     Dosage: DOSE: UNKTHERAPY DATES: UNTIL DECEMBER 2021 ()
  10. TRAMADOL [Concomitant]
     Active Substance: TRAMADOL
     Indication: Product used for unknown indication
     Dosage: DOSE AND THERAPY DATES: UNK ()
  11. PLIDEX T [Concomitant]
     Indication: Irritable bowel syndrome
     Dosage: DOSE AND THERAPY DATES: UNK

REACTIONS (6)
  - Urinary retention [Recovering/Resolving]
  - Asthenia [Recovering/Resolving]
  - Spinal cord compression [Recovering/Resolving]
  - Bedridden [Recovering/Resolving]
  - Paraesthesia [Unknown]
  - Drug titration [Unknown]

NARRATIVE: CASE EVENT DATE: 20220803
